FAERS Safety Report 9850438 (Version 1)
Quarter: 2014Q1

REPORT INFORMATION
  Report Type: Spontaneous
  Country: HU (occurrence: HU)
  Receive Date: 20140128
  Receipt Date: 20140128
  Transmission Date: 20141002
  Serious: Yes (Life-Threatening, Hospitalization)
  Sender: FDA-Public Use
  Company Number: HU-ABBVIE-14P-076-1193666-00

PATIENT
  Age: 19 Year
  Sex: Male
  Weight: 55 kg

DRUGS (3)
  1. HUMIRA [Suspect]
     Indication: CROHN^S DISEASE
     Route: 058
     Dates: start: 20130815, end: 20140109
  2. PENTASA [Concomitant]
     Indication: CROHN^S DISEASE
     Route: 048
     Dates: start: 2010
  3. IMURAN [Concomitant]
     Indication: CROHN^S DISEASE
     Route: 048
     Dates: start: 2010, end: 20140108

REACTIONS (8)
  - Encephalitis [Recovering/Resolving]
  - Pyrexia [Recovering/Resolving]
  - Asthenia [Recovering/Resolving]
  - Malaise [Recovering/Resolving]
  - Diplopia [Recovering/Resolving]
  - Headache [Recovering/Resolving]
  - Meningism [Recovered/Resolved]
  - Listeriosis [Recovering/Resolving]
